FAERS Safety Report 5463221-5 (Version None)
Quarter: 2007Q3

REPORT INFORMATION
  Report Type: 
  Country: None (occurrence: None)
  Receive Date: 20070920
  Receipt Date: 20070911
  Transmission Date: 20080115
  Serious: Yes (Death)
  Sender: FDA-Public Use
  Company Number: B0487641A

PATIENT

DRUGS (3)
  1. HYCAMTIN [Suspect]
     Route: 042
  2. CISPLATIN [Suspect]
     Route: 042
  3. ERBITUX [Suspect]
     Route: 042

REACTIONS (1)
  - DEATH [None]
